FAERS Safety Report 4479212-7 (Version None)
Quarter: 2004Q4

REPORT INFORMATION
  Report Type: 
  Country: None (occurrence: None)
  Receive Date: 20041020
  Receipt Date: 20041011
  Transmission Date: 20050328
  Serious: Yes (Hospitalization)
  Sender: FDA-Public Use
  Company Number: BE-JNJFOC-20040701131

PATIENT
  Age: 69 Year
  Sex: Female

DRUGS (16)
  1. INFLIXIMAB BLINDED [Suspect]
     Route: 042
  2. INFLIXIMAB BLINDED [Suspect]
     Route: 042
  3. INFLIXIMAB BLINDED [Suspect]
     Route: 042
  4. INFLIXIMAB BLINDED [Suspect]
     Route: 042
  5. INFLIXIMAB BLINDED [Suspect]
     Indication: RHEUMATOID ARTHRITIS
     Route: 042
  6. METHOTREXATE [Suspect]
     Indication: RHEUMATOID ARTHRITIS
  7. EUTHYROX [Concomitant]
     Indication: HYPOTHYROIDISM
  8. SERETIDE DISKUS [Concomitant]
  9. SERETIDE DISKUS [Concomitant]
     Indication: ASTHMA
  10. LOMUDAL [Concomitant]
     Indication: ASTHMA
  11. FOLIC ACID [Concomitant]
  12. CELEBREX [Concomitant]
  13. THEOLAIR [Concomitant]
     Indication: ASTHMA
     Route: 049
  14. SINGULAIR [Concomitant]
  15. CACIT D3 [Concomitant]
  16. CACIT D3 [Concomitant]
     Indication: OSTEOPOROSIS PROPHYLAXIS

REACTIONS (2)
  - INFLAMMATION LOCALISED [None]
  - RESPIRATORY FAILURE [None]
